FAERS Safety Report 18271736 (Version 1)
Quarter: 2020Q3

REPORT INFORMATION
  Report Type: Spontaneous
  Country: ES (occurrence: ES)
  Receive Date: 20200916
  Receipt Date: 20200916
  Transmission Date: 20201103
  Serious: Yes (Hospitalization)
  Sender: FDA-Public Use
  Company Number: ES-CADILA HEALTHCARE LIMITED-ES-ZYDUS-027913

PATIENT

DRUGS (8)
  1. LEVOFLOXACIN. [Suspect]
     Active Substance: LEVOFLOXACIN
     Indication: RESPIRATORY TRACT INFECTION
     Dosage: 500 MILLIGRAM,(INTERVAL :1 DAYS)
     Route: 048
     Dates: start: 201802, end: 20180218
  2. ARTILOG [Concomitant]
     Active Substance: CELECOXIB
     Dosage: 200 MILLIGRAM,200 MG HARD CAPSULES, 100 CAPSULES,(INTERVAL :1 DAYS)
     Route: 048
  3. PARACETAMOL,TRAMADOL [Concomitant]
     Active Substance: ACETAMINOPHEN\TRAMADOL
     Dosage: 1 DOSAGE FORM,(INTERVAL :8 HOURS)
     Route: 048
  4. RISPERIDONE. [Concomitant]
     Active Substance: RISPERIDONE
     Dosage: .25 MILLILITER,(INTERVAL :1 DAYS)
     Route: 048
  5. DEPRAX [Concomitant]
     Dosage: 100 MILLIGRAM,100 MG COMPRESSED FILMS WITH FILM EFG, 30 TABLETS,(INTERVAL :1 DAYS)
     Route: 048
  6. SINTROM [Suspect]
     Active Substance: ACENOCOUMAROL
     Indication: THROMBOPHLEBITIS
     Dosage: 4 MG COMPRESSED, 20 TABLETS
     Route: 048
     Dates: start: 201711, end: 20180220
  7. MEMANTINE HYDROCHLORIDE. [Concomitant]
     Active Substance: MEMANTINE HYDROCHLORIDE
     Dosage: 20 MILLIGRAM,20 MG COMPRIMIDOS BUCODISPERSABLES EFG, 56 TABLETS,(INTERVAL :1 DAYS)
     Route: 048
  8. EPROSARTAN W/ HYDROCHLOROTHIAZIDE [Concomitant]
     Dosage: 1 DOSAGE FORM,(INTERVAL :1 DAYS)
     Route: 048

REACTIONS (1)
  - Rectal haemorrhage [Recovered/Resolved]

NARRATIVE: CASE EVENT DATE: 20180220
